FAERS Safety Report 5024134-6 (Version None)
Quarter: 2006Q2

REPORT INFORMATION
  Report Type: 
  Country: None (occurrence: None)
  Receive Date: 20060607
  Receipt Date: 20060522
  Transmission Date: 20061013
  Serious: Yes (Other)
  Sender: FDA-Public Use
  Company Number: US200605004949

PATIENT
  Age: 60 Year
  Sex: Female

DRUGS (5)
  1. HUMALOG PEN [Suspect]
     Indication: DIABETES MELLITUS
     Dosage: 60 U, OTHER; AS NEEDED
     Dates: start: 20060301, end: 20060301
  2. HUMALOG PEN [Suspect]
     Indication: DIABETES MELLITUS
     Dosage: 60 U, OTHER; AS NEEDED
     Dates: start: 19990101
  3. HUMALOG MIX 75/25 [Suspect]
     Indication: DIABETES MELLITUS
     Dosage: 60 U, 2/D
     Dates: start: 19990101
  4. HUMALOG MIX 25L / 75NPL PEN (HUMALOG MIX 25L / 75NPL PEN) PEN,DISPOSAB [Concomitant]
  5. COUMADIN [Concomitant]

REACTIONS (3)
  - ARRHYTHMIA [None]
  - EYE LASER SURGERY [None]
  - WRONG DRUG ADMINISTERED [None]
